FAERS Safety Report 5248625-8 (Version None)
Quarter: 2007Q1

REPORT INFORMATION
  Report Type: 
  Country: None (occurrence: None)
  Receive Date: 20070222
  Receipt Date: 20070209
  Transmission Date: 20070707
  Serious: Yes (Hospitalization)
  Sender: FDA-Public Use
  Company Number: 2006-149661-NL

PATIENT
  Age: 81 Year
  Sex: Female

DRUGS (6)
  1. MIRTAZAPINE [Suspect]
     Dosage: MAINTENANCE DOSE
  2. ESCITALOPRAM [Suspect]
     Dosage: 10 MG DAILY
  3. HYDROCHLOROTHIAZIDE [Suspect]
     Dosage: MAINTENANCE DOSE
  4. RAMIPRIL [Concomitant]
  5. DONEPEZIL HCL [Concomitant]
  6. ALENDRONIC ACID [Concomitant]

REACTIONS (5)
  - ASTHENIA [None]
  - DRUG INTERACTION [None]
  - ELECTROLYTE IMBALANCE [None]
  - FALL [None]
  - INAPPROPRIATE ANTIDIURETIC HORMONE SECRETION [None]
